FAERS Safety Report 6536602-6 (Version None)
Quarter: 2010Q1

REPORT INFORMATION
  Report Type: 
  Country: None (occurrence: None)
  Receive Date: 20100113
  Receipt Date: 20100105
  Transmission Date: 20100710
  Serious: Yes (Other)
  Sender: FDA-Public Use
  Company Number: JP-PFIZER INC-2010002937

PATIENT
  Sex: Male

DRUGS (5)
  1. VFEND [Suspect]
     Indication: ASPERGILLOSIS
     Route: 042
  2. VFEND [Suspect]
     Route: 048
  3. CLARITH [Concomitant]
     Indication: BRONCHITIS
     Route: 048
  4. CLARITH [Concomitant]
     Indication: EMPHYSEMA
  5. FERROMIA [Concomitant]
     Indication: ANAEMIA
     Dosage: UNK
     Route: 048

REACTIONS (5)
  - FLUSHING [None]
  - HYPOAESTHESIA [None]
  - IMMUNE SYSTEM DISORDER [None]
  - MALAISE [None]
  - PYREXIA [None]
